FAERS Safety Report 11854952 (Version 1)
Quarter: 2015Q4

REPORT INFORMATION
  Report Type: Spontaneous
  Country: US (occurrence: US)
  Receive Date: 20151221
  Receipt Date: 20151221
  Transmission Date: 20160305
  Serious: Yes (Hospitalization, Other)
  Sender: FDA-Public Use
  Company Number: US-DRREDDYS-USA/USA/15/0054747

PATIENT
  Age: 28 Year

DRUGS (2)
  1. FUROSEMIDE. [Concomitant]
     Active Substance: FUROSEMIDE
     Indication: OEDEMA PERIPHERAL
     Route: 065
  2. CARVEDILOL. [Suspect]
     Active Substance: CARVEDILOL
     Indication: ARRHYTHMIA
     Route: 065

REACTIONS (9)
  - Dyspnoea [Unknown]
  - Cardiac failure [Recovered/Resolved]
  - Uterine atony [Unknown]
  - Oedema peripheral [Unknown]
  - Exposure during pregnancy [Unknown]
  - Postpartum haemorrhage [Unknown]
  - Haemoglobin decreased [Unknown]
  - Left ventricular dysfunction [Recovered/Resolved]
  - Orthopnoea [Unknown]
